FAERS Safety Report 10780704 (Version 1)
Quarter: 2015Q1

REPORT INFORMATION
  Report Type: Spontaneous
  Country: US (occurrence: US)
  Receive Date: 20150210
  Receipt Date: 20150210
  Transmission Date: 20150721
  Serious: No
  Sender: FDA-Public Use
  Company Number: US-GLAXOSMITHKLINE-A1060630A

PATIENT

DRUGS (2)
  1. NICODERM CQ [Suspect]
     Active Substance: NICOTINE
     Indication: SMOKING CESSATION THERAPY
     Route: 062
     Dates: start: 20140210
  2. TUMS [Suspect]
     Active Substance: CALCIUM CARBONATE
     Indication: NAUSEA
     Route: 048
     Dates: start: 20140210, end: 20140210

REACTIONS (4)
  - Eating disorder [Recovered/Resolved]
  - Drug administration error [Unknown]
  - Nausea [Not Recovered/Not Resolved]
  - Product quality issue [Unknown]

NARRATIVE: CASE EVENT DATE: 20140210
